FAERS Safety Report 5352938-9 (Version None)
Quarter: 2007Q2

REPORT INFORMATION
  Report Type: 
  Country: None (occurrence: None)
  Receive Date: 20070607
  Receipt Date: 20070524
  Transmission Date: 20071010
  Serious: Yes (Death, Hospitalization)
  Sender: FDA-Public Use
  Company Number: SIM20070016

PATIENT
  Age: 59 Year
  Sex: Male
  Weight: 88.9 kg

DRUGS (3)
  1. SIMVASTATIN [Suspect]
     Indication: HYPERLIPIDAEMIA
     Dosage: 40 MG DAILY PO
     Route: 048
     Dates: start: 20040701, end: 20050701
  2. LISINOPRIL [Concomitant]
  3. ASPIRIN [Concomitant]

REACTIONS (20)
  - ABASIA [None]
  - BLOOD PRESSURE DECREASED [None]
  - CULTURE TISSUE SPECIMEN POSITIVE [None]
  - CULTURE URINE POSITIVE [None]
  - CYTOMEGALOVIRUS INFECTION [None]
  - ENTEROCOCCAL INFECTION [None]
  - GASTRIC HAEMORRHAGE [None]
  - HAEMODIALYSIS [None]
  - HEPATIC HAEMORRHAGE [None]
  - HEPATIC NECROSIS [None]
  - LUNG ABSCESS [None]
  - MYOCARDIAL FIBROSIS [None]
  - PNEUMONIA NECROTISING [None]
  - RENAL TUBULAR NECROSIS [None]
  - RESPIRATORY ACIDOSIS [None]
  - RHABDOMYOLYSIS [None]
  - SPUTUM CULTURE POSITIVE [None]
  - STAPHYLOCOCCAL INFECTION [None]
  - TREMOR [None]
  - WEIGHT INCREASED [None]
